FAERS Safety Report 5775054-0 (Version None)
Quarter: 2008Q2

REPORT INFORMATION
  Report Type: 
  Country: None (occurrence: None)
  Receive Date: 20080617
  Receipt Date: 20080613
  Transmission Date: 20081010
  Serious: Yes (Other)
  Sender: FDA-Public Use
  Company Number: US-ROCHE-570106

PATIENT
  Age: 79 Year
  Sex: Female

DRUGS (2)
  1. NAPROXEN [Suspect]
     Route: 065
     Dates: start: 20060602
  2. METFORMIN HCL [Concomitant]

REACTIONS (3)
  - CATARACT OPERATION [None]
  - EYE HAEMORRHAGE [None]
  - RENAL HAEMORRHAGE [None]
